FAERS Safety Report 14853149 (Version 2)
Quarter: 2018Q2

REPORT INFORMATION
  Report Type: Spontaneous
  Country: US (occurrence: US)
  Receive Date: 20180507
  Receipt Date: 20180514
  Transmission Date: 20180711
  Serious: Yes (Other)
  Sender: FDA-Public Use
  Company Number: US-LEXICON PHARMACEUTICALS, INC-18-1606-00503

PATIENT
  Age: 63 Year
  Sex: Male

DRUGS (19)
  1. CIALIS [Concomitant]
     Active Substance: TADALAFIL
  2. DEXAMETHASON [Concomitant]
     Active Substance: DEXAMETHASONE
  3. PROCHLORPERAZINE. [Concomitant]
     Active Substance: PROCHLORPERAZINE
  4. ZYRTEC [Concomitant]
     Active Substance: CETIRIZINE HYDROCHLORIDE
  5. RANITIDINE. [Concomitant]
     Active Substance: RANITIDINE
  6. LASIX [Concomitant]
     Active Substance: FUROSEMIDE
  7. TELOTRISTAT ETHYL [Suspect]
     Active Substance: TELOTRISTAT ETHYL
     Indication: NEUROENDOCRINE TUMOUR
     Route: 048
     Dates: start: 20170621
  8. VITAMIN B12 [Concomitant]
     Active Substance: CYANOCOBALAMIN
  9. KADIAN [Concomitant]
     Active Substance: MORPHINE SULFATE
  10. CONSTULOSE [Concomitant]
     Active Substance: LACTULOSE
  11. SANDOSTATIN LAR DEPOT [Concomitant]
     Active Substance: OCTREOTIDE ACETATE
  12. AMLODIPINE [Concomitant]
     Active Substance: AMLODIPINE BESYLATE
  13. NEOMYCIN SULFATE. [Concomitant]
     Active Substance: NEOMYCIN SULFATE
  14. OXYCODONE [Concomitant]
     Active Substance: OXYCODONE
  15. XIFAXAN [Concomitant]
     Active Substance: RIFAXIMIN
  16. CALCIUM CITRATE [Concomitant]
     Active Substance: CALCIUM CITRATE
  17. ZOFRAN [Concomitant]
     Active Substance: ONDANSETRON HYDROCHLORIDE
  18. CLARITIN [Concomitant]
     Active Substance: LORATADINE
  19. AFINITOR [Concomitant]
     Active Substance: EVEROLIMUS

REACTIONS (1)
  - Pyrexia [Unknown]

NARRATIVE: CASE EVENT DATE: 20180426
